FAERS Safety Report 7208021-0 (Version None)
Quarter: 2010Q4

REPORT INFORMATION
  Report Type: 
  Country: None (occurrence: None)
  Receive Date: 20101230
  Receipt Date: 20101230
  Transmission Date: 20110411
  Serious: Yes (Life-Threatening, Hospitalization, Disabling, Other)
  Sender: FDA-Public Use
  Company Number: None

PATIENT
  Age: 41 Year
  Sex: Female
  Weight: 81.6475 kg

DRUGS (1)
  1. KEFLEX [Suspect]

REACTIONS (10)
  - ABDOMINAL PAIN UPPER [None]
  - APPARENT DEATH [None]
  - DOCUMENTED HYPERSENSITIVITY TO ADMINISTERED DRUG [None]
  - DRUG PRESCRIBING ERROR [None]
  - FALL [None]
  - HEADACHE [None]
  - LOCAL SWELLING [None]
  - OEDEMA PERIPHERAL [None]
  - RESPIRATORY DISORDER [None]
  - SWELLING FACE [None]
